FAERS Safety Report 15807255 (Version 1)
Quarter: 2018Q4

REPORT INFORMATION
  Report Type: Spontaneous
  Country: US (occurrence: US)
  Receive Date: 20181214
  Receipt Date: 20181214
  Transmission Date: 20190205
  Serious: Yes (Hospitalization)
  Sender: FDA-Public Use
  Company Number: None

PATIENT
  Sex: Female

DRUGS (25)
  1. CYCLOBENZAPR [Concomitant]
     Active Substance: CYCLOBENZAPRINE
  2. METHYLPRED [Concomitant]
     Active Substance: METHYLPREDNISOLONE
  3. PROCTOZONE [Concomitant]
     Active Substance: HYDROCORTISONE
  4. INCRUSE ELLIPTA [Concomitant]
     Active Substance: UMECLIDINIUM BROMIDE
  5. DOXYCYCL HYC [Concomitant]
  6. LEVOFLOXACIN. [Concomitant]
     Active Substance: LEVOFLOXACIN
  7. VITAMIN D [Concomitant]
     Active Substance: CHOLECALCIFEROL
  8. CIPROFLOXACIN. [Concomitant]
     Active Substance: CIPROFLOXACIN
  9. EPINEPHRINE. [Concomitant]
     Active Substance: EPINEPHRINE
  10. PREDNISONE. [Concomitant]
     Active Substance: PREDNISONE
  11. BENZONATATE. [Concomitant]
     Active Substance: BENZONATATE
  12. FLAGYL [Suspect]
     Active Substance: METRONIDAZOLE\METRONIDAZOLE HYDROCHLORIDE
  13. LEVAQUIN [Suspect]
     Active Substance: LEVOFLOXACIN
  14. ALBUTEROL. [Concomitant]
     Active Substance: ALBUTEROL
  15. AZITHROMYCIN ANHYDROUS. [Concomitant]
     Active Substance: AZITHROMYCIN ANHYDROUS
  16. CIPRO [Suspect]
     Active Substance: CIPROFLOXACIN HYDROCHLORIDE
  17. AZACTAM [Suspect]
     Active Substance: AZTREONAM
  18. METRONIDAZOLE. [Concomitant]
     Active Substance: METRONIDAZOLE
  19. FLUTICASONE. [Concomitant]
     Active Substance: FLUTICASONE
  20. BARIUM [Suspect]
     Active Substance: BARIUM
  21. SINGULAIR [Concomitant]
     Active Substance: MONTELUKAST SODIUM
  22. BREO ELLIPTA [Concomitant]
     Active Substance: FLUTICASONE FUROATE\VILANTEROL TRIFENATATE
  23. PROAIR HFA [Concomitant]
     Active Substance: ALBUTEROL SULFATE
  24. ADVAIR DISKUS AER [Concomitant]
  25. BENZONATATE. [Concomitant]
     Active Substance: BENZONATATE

REACTIONS (2)
  - Contrast media reaction [None]
  - Drug hypersensitivity [None]
